FAERS Safety Report 7183515-5 (Version None)
Quarter: 2010Q4

REPORT INFORMATION
  Report Type: 
  Country: None (occurrence: None)
  Receive Date: 20101222
  Receipt Date: 20101210
  Transmission Date: 20110411
  Serious: Yes (Other)
  Sender: FDA-Public Use
  Company Number: PHHY2010AT84485

PATIENT
  Sex: Male

DRUGS (1)
  1. RITALIN [Suspect]
     Dosage: 3 X 50 G TABLETS THREE TIMES DAILY
     Route: 048

REACTIONS (4)
  - AMNESIA [None]
  - EPILEPSY [None]
  - FEELING ABNORMAL [None]
  - OVERDOSE [None]
